FAERS Safety Report 6029117-5 (Version None)
Quarter: 2008Q4

REPORT INFORMATION
  Report Type: 
  Country: None (occurrence: None)
  Receive Date: 20081230
  Receipt Date: 20081217
  Transmission Date: 20090506
  Serious: No
  Sender: FDA-Public Use
  Company Number: 2008-188643-NL

PATIENT
  Age: 16 Year
  Sex: Female

DRUGS (1)
  1. ETONOGESTREL [Suspect]
     Indication: CONTRACEPTION
     Dosage: DF SUBDERMAL
     Route: 059
     Dates: start: 20080701, end: 20081022

REACTIONS (3)
  - BENIGN INTRACRANIAL HYPERTENSION [None]
  - CSF PRESSURE ABNORMAL [None]
  - PAPILLOEDEMA [None]
